FAERS Safety Report 7828962-0 (Version None)
Quarter: 2011Q4

REPORT INFORMATION
  Report Type: 
  Country: None (occurrence: None)
  Receive Date: 20111020
  Receipt Date: 20111017
  Transmission Date: 20120403
  Serious: Yes (Other)
  Sender: FDA-Public Use
  Company Number: US-BAYER-2011-100809

PATIENT
  Age: 49 Year
  Sex: Female

DRUGS (1)
  1. MAGNEVIST [Suspect]
     Indication: NUCLEAR MAGNETIC RESONANCE IMAGING BRAIN
     Dosage: 17 ML ADMINISTERED I.V
     Route: 042
     Dates: start: 20111013, end: 20111013

REACTIONS (2)
  - ORBITAL OEDEMA [None]
  - CORNEAL OEDEMA [None]
